FAERS Safety Report 4848261-9 (Version None)
Quarter: 2005Q4

REPORT INFORMATION
  Report Type: 
  Country: None (occurrence: None)
  Receive Date: 20051207
  Receipt Date: 20051207
  Transmission Date: 20060501
  Serious: Yes (Hospitalization)
  Sender: FDA-Public Use
  Company Number: None

PATIENT
  Age: 60 Year
  Sex: Female
  Weight: 67.1324 kg

DRUGS (19)
  1. TAXOTERE [Suspect]
     Indication: BREAST CANCER
     Dosage: 100 MG/M2 IV CYCLE 1 = 10/5/05, CYCLE 2 = 10/19/05, CYCLE 3 = 11/2/05, CYCLE 4 =11/16/05
     Route: 042
     Dates: start: 20051005
  2. TAXOTERE [Suspect]
     Indication: BREAST CANCER
     Dosage: 100 MG/M2 IV CYCLE 1 = 10/5/05, CYCLE 2 = 10/19/05, CYCLE 3 = 11/2/05, CYCLE 4 =11/16/05
     Route: 042
     Dates: start: 20051019
  3. TAXOTERE [Suspect]
     Indication: BREAST CANCER
     Dosage: 100 MG/M2 IV CYCLE 1 = 10/5/05, CYCLE 2 = 10/19/05, CYCLE 3 = 11/2/05, CYCLE 4 =11/16/05
     Route: 042
     Dates: start: 20051102
  4. TAXOTERE [Suspect]
     Indication: BREAST CANCER
     Dosage: 100 MG/M2 IV CYCLE 1 = 10/5/05, CYCLE 2 = 10/19/05, CYCLE 3 = 11/2/05, CYCLE 4 =11/16/05
     Route: 042
     Dates: start: 20051116
  5. NEULASTA [Concomitant]
  6. DECADRON [Concomitant]
  7. GLIPIZIDE [Concomitant]
  8. POLYTRIM EYE DROPS [Concomitant]
  9. NORVASC [Concomitant]
  10. RISPERDAL [Concomitant]
  11. ALLEGRA [Concomitant]
  12. ACTOS [Concomitant]
  13. POLYTRIM [Concomitant]
  14. BENICAR [Concomitant]
  15. ZADITOR [Concomitant]
  16. K-DUR 10 [Concomitant]
  17. HYDROCHLOROTHIAZIDE [Concomitant]
  18. LIPITOR [Concomitant]
  19. ATENOLOL [Concomitant]

REACTIONS (2)
  - ANAEMIA [None]
  - ASTHENIA [None]
